FAERS Safety Report 5584882-6 (Version None)
Quarter: 2008Q1

REPORT INFORMATION
  Report Type: 
  Country: None (occurrence: None)
  Receive Date: 20080104
  Receipt Date: 20071221
  Transmission Date: 20080703
  Serious: Yes (Other)
  Sender: FDA-Public Use
  Company Number: STI-2007-02214

PATIENT
  Age: 38 Year
  Sex: Female

DRUGS (2)
  1. 516B DUAC (CLINDAMYCIN + BENZOYL PEROXIDE) [Suspect]
     Indication: ACNE
     Dosage: PERIODICALLY, TOPICAL
     Route: 061
     Dates: start: 20071216, end: 20071217
  2. PROGESTERONE [Concomitant]

REACTIONS (3)
  - CAUSTIC INJURY [None]
  - HYPERHIDROSIS [None]
  - NO THERAPEUTIC RESPONSE [None]
